FAERS Safety Report 10141857 (Version 2)
Quarter: 2014Q2

REPORT INFORMATION
  Report Type: Spontaneous
  Country: US (occurrence: US)
  Receive Date: 20140429
  Receipt Date: 20140429
  Transmission Date: 20141212
  Serious: Yes (Other)
  Sender: FDA-Public Use
  Company Number: PHHY2013US127155

PATIENT
  Sex: Female

DRUGS (13)
  1. LIORESAL INTRATECAL [Suspect]
     Indication: MUSCLE SPASTICITY
     Dosage: 200 UG, DAY
     Route: 037
     Dates: start: 20130822
  2. LIORESAL INTRATECAL [Suspect]
     Dosage: 200 UG, DAY
     Route: 037
     Dates: start: 20130926
  3. LIORESAL INTRATECAL [Suspect]
     Dosage: 300 UG, DAILY
     Route: 037
     Dates: start: 20131029
  4. LIORESAL INTRATECAL [Suspect]
     Dosage: 96 UKN, UNK
     Route: 037
  5. LIORESAL INTRATECAL [Suspect]
     Dosage: 350 UG, DAILY
     Route: 037
     Dates: start: 20131008
  6. LIORESAL INTRATECAL [Suspect]
     Dosage: 300 UG, DAILY
     Route: 037
     Dates: start: 20131011
  7. LIORESAL INTRATECAL [Suspect]
     Dosage: 250 UG, DAILY
     Route: 037
     Dates: start: 20131015
  8. LIORESAL INTRATECAL [Suspect]
     Dosage: 350 UG, DAILY
     Route: 037
     Dates: start: 20131107
  9. LIORESAL INTRATECAL [Suspect]
     Dosage: 375 UG, DAILY
     Route: 037
     Dates: start: 20131126
  10. LIORESAL INTRATECAL [Suspect]
     Dosage: 350 UG, DAILY
     Route: 037
     Dates: start: 20131127
  11. LIORESAL INTRATECAL [Suspect]
     Dosage: 275 UG, DAILY (300 IN ONE WEEK)
     Route: 037
     Dates: start: 20140107
  12. LIORESAL INTRATECAL [Suspect]
     Dosage: 225 UG, DAILY (250 PER WEEK) (2000MCG PER ML )
     Route: 037
     Dates: start: 20140121
  13. TRAMADOL [Suspect]
     Dosage: UNK UKN, UNK

REACTIONS (15)
  - Feeling abnormal [Unknown]
  - Discomfort [Unknown]
  - Loss of control of legs [Unknown]
  - Performance status decreased [Unknown]
  - Frustration [Unknown]
  - Excoriation [Unknown]
  - Therapeutic response changed [Unknown]
  - Hypotonia [Unknown]
  - Muscle rigidity [Unknown]
  - Muscle tightness [Unknown]
  - Hot flush [Unknown]
  - Pruritus [Unknown]
  - Overdose [Unknown]
  - No therapeutic response [Unknown]
  - Drug withdrawal syndrome [Unknown]
